FAERS Safety Report 15528399 (Version 1)
Quarter: 2018Q4

REPORT INFORMATION
  Report Type: Report from Study
  Country: US (occurrence: US)
  Receive Date: 20181018
  Receipt Date: 20181018
  Transmission Date: 20190205
  Serious: No
  Sender: FDA-Public Use
  Company Number: US-AMGEN-USASL2018138421

PATIENT
  Sex: Female

DRUGS (3)
  1. TALTZ [Concomitant]
     Active Substance: IXEKIZUMAB
  2. REPATHA [Suspect]
     Active Substance: EVOLOCUMAB
     Dosage: 140 MG, Q4WK
     Route: 065
  3. REPATHA [Suspect]
     Active Substance: EVOLOCUMAB
     Indication: LIPIDS ABNORMAL
     Dosage: 140 MG, UNK
     Route: 065

REACTIONS (1)
  - Muscle spasms [Unknown]
